FAERS Safety Report 8953613 (Version 1)
Quarter: 2012Q4

REPORT INFORMATION
  Report Type: 
  Country: AR (occurrence: AR)
  Receive Date: 20121206
  Receipt Date: 20121206
  Transmission Date: 20130627
  Serious: Yes (Death)
  Sender: FDA-Public Use
  Company Number: AR-B.I. PHARMACEUTICALS,INC./RIDGEFIELD-2012-RA-00355RA

PATIENT
  Age: 72 Year
  Sex: Female
  Weight: 64 kg

DRUGS (5)
  1. PRADAXA [Suspect]
     Indication: CEREBROVASCULAR ACCIDENT PROPHYLAXIS
     Dosage: 300 mg
     Route: 048
     Dates: start: 201209, end: 201210
  2. PRADAXA [Suspect]
     Indication: ATRIAL FIBRILLATION
  3. T4 [Concomitant]
     Indication: HYPOTHYROIDISM
     Route: 048
     Dates: end: 20121027
  4. ROSUVASTATIN [Concomitant]
     Route: 048
     Dates: end: 20121027
  5. TELMISARTAN [Concomitant]
     Indication: HYPERTENSION
     Route: 048
     Dates: end: 20121027

REACTIONS (2)
  - Ischaemic stroke [Fatal]
  - Cerebral haemorrhage [Fatal]
